FAERS Safety Report 10388855 (Version 1)
Quarter: 2014Q1

REPORT INFORMATION
  Report Type: Spontaneous
  Country: US (occurrence: None)
  Receive Date: 20140306
  Receipt Date: 20140306
  Transmission Date: 20141002
  Serious: Yes (Hospitalization)
  Sender: FDA-Public Use
  Company Number: 163-21880-13094359

PATIENT
  Age: 90 Year
  Sex: Female

DRUGS (11)
  1. REVLIMID [Suspect]
     Indication: MYELODYSPLASTIC SYNDROME
     Dosage: 5MG, 21 IN 28 D, PO
     Route: 048
     Dates: start: 201308
  2. CALCIUM/MAGNESIUM/ZINC [Concomitant]
  3. LEVOTHYROXINE SODIUM (TABLETS) [Concomitant]
  4. METHYLPREDNISOLONE (TABLETS) [Concomitant]
  5. METOPROLOL SUCCINATE (TABLETS) [Concomitant]
  6. CENTRUM (TABLETS) [Concomitant]
  7. NORVASC (AMLODIPINE BESILATE) (TABLETS) [Concomitant]
  8. PRILOSEC (OMEPRAZOLE) (CAPSULES) [Concomitant]
  9. ARANESP (DARBOPOETIN ALFA) [Concomitant]
  10. FLEXERIL (CYCLOBENZAPRINE HYDROCHLORIDE) [Concomitant]
  11. OXYCODONE [Concomitant]

REACTIONS (5)
  - Gastrointestinal haemorrhage [None]
  - Thrombophlebitis septic [None]
  - Cellulitis staphylococcal [None]
  - Rash [None]
  - Staphylococcal bacteraemia [None]
